FAERS Safety Report 4844209-1 (Version None)
Quarter: 2005Q4

REPORT INFORMATION
  Report Type: 
  Country: None (occurrence: None)
  Receive Date: 20051202
  Receipt Date: 20051128
  Transmission Date: 20060501
  Serious: Yes (Other)
  Sender: FDA-Public Use
  Company Number: S05-USA-05004-01

PATIENT
  Age: 29 Year
  Sex: Female

DRUGS (5)
  1. ADVAIR DISKUS 100/50 [Suspect]
     Indication: ASTHMA
     Route: 055
  2. ALBUTEROL [Suspect]
     Indication: ASTHMA
     Route: 055
  3. IPRATROPIUM BROMIDE [Suspect]
     Indication: ASTHMA
     Route: 055
  4. LEXAPRO [Suspect]
     Indication: DRUG USE FOR UNKNOWN INDICATION
     Dosage: 10MG PER DAY
     Dates: start: 20050701
  5. SINGULAIR [Suspect]
     Indication: ASTHMA

REACTIONS (5)
  - ABNORMAL DREAMS [None]
  - ASTHMA [None]
  - DRUG INTERACTION [None]
  - PANIC REACTION [None]
  - RESPIRATORY TRACT INFECTION [None]
